FAERS Safety Report 25088802 (Version 1)
Quarter: 2025Q1

REPORT INFORMATION
  Report Type: Spontaneous
  Country: AR (occurrence: AR)
  Receive Date: 20250318
  Receipt Date: 20250318
  Transmission Date: 20250409
  Serious: Yes (Hospitalization)
  Sender: SANDOZ
  Company Number: AR-SANDOZ-SDZ2024AR048113

PATIENT
  Age: 13 Year
  Sex: Female
  Weight: 32.5 kg

DRUGS (1)
  1. OMNITROPE [Suspect]
     Active Substance: SOMATROPIN
     Indication: Growth failure
     Route: 058
     Dates: start: 20231218

REACTIONS (2)
  - Abdominal discomfort [Unknown]
  - Product availability issue [Unknown]

NARRATIVE: CASE EVENT DATE: 20240201
